FAERS Safety Report 12096369 (Version 2)
Quarter: 2020Q1

REPORT INFORMATION
  Report Type: Spontaneous
  Country: US (occurrence: US)
  Receive Date: 20160220
  Receipt Date: 20200331
  Transmission Date: 20200409
  Serious: Yes (Death, Other)
  Sender: FDA-Public Use
  Company Number: US-ASTRAZENECA-2008BM06688

PATIENT
  Age: 66 Year
  Sex: Male
  Weight: 104.3 kg

DRUGS (69)
  1. BYETTA [Suspect]
     Active Substance: EXENATIDE
     Indication: INSULIN-REQUIRING TYPE 2 DIABETES MELLITUS
     Route: 058
     Dates: start: 200612, end: 200809
  2. BYETTA [Suspect]
     Active Substance: EXENATIDE
     Indication: INSULIN-REQUIRING TYPE 2 DIABETES MELLITUS
     Dosage: 250.0UG UNKNOWN
     Route: 058
     Dates: start: 20070129, end: 200704
  3. BENZONATATE. [Concomitant]
     Active Substance: BENZONATATE
  4. GLIPIZIDE. [Concomitant]
     Active Substance: GLIPIZIDE
  5. HYZAAR [Concomitant]
     Active Substance: HYDROCHLOROTHIAZIDE\LOSARTAN POTASSIUM
  6. CEFDINIR. [Concomitant]
     Active Substance: CEFDINIR
  7. PRADAXA [Concomitant]
     Active Substance: DABIGATRAN ETEXILATE MESYLATE
  8. ASCORBIC ACID. [Concomitant]
     Active Substance: ASCORBIC ACID
  9. BYETTA [Suspect]
     Active Substance: EXENATIDE
     Indication: INSULIN-REQUIRING TYPE 2 DIABETES MELLITUS
     Dosage: 5.0UG UNKNOWN
     Route: 058
     Dates: start: 2007, end: 2007
  10. BYETTA [Suspect]
     Active Substance: EXENATIDE
     Indication: INSULIN-REQUIRING TYPE 2 DIABETES MELLITUS
     Dosage: 250.0UG UNKNOWN
     Route: 058
     Dates: start: 20080926
  11. INSULIN [Concomitant]
     Active Substance: INSULIN NOS
     Indication: INSULIN-REQUIRING TYPE 2 DIABETES MELLITUS
     Dosage: UNK
     Route: 058
  12. TERAZOSIN [Concomitant]
     Active Substance: TERAZOSIN HYDROCHLORIDE
  13. NEURONTIN [Concomitant]
     Active Substance: GABAPENTIN
  14. ZITHROMAX [Concomitant]
     Active Substance: AZITHROMYCIN DIHYDRATE
  15. AMOX/CLAVULANATE [Concomitant]
     Active Substance: AMOXICILLIN\CLAVULANATE POTASSIUM
  16. CHOLESTYRAMINE. [Concomitant]
     Active Substance: CHOLESTYRAMINE
  17. PREDNISONE. [Concomitant]
     Active Substance: PREDNISONE
  18. RESTASIS [Concomitant]
     Active Substance: CYCLOSPORINE
  19. HYDROCODONE [Concomitant]
     Active Substance: HYDROCODONE
  20. JANUMET [Suspect]
     Active Substance: METFORMIN HYDROCHLORIDE\SITAGLIPTIN PHOSPHATE
     Dosage: 50-500 MG
     Route: 065
     Dates: start: 20090925, end: 201005
  21. GLYBURIDE. [Concomitant]
     Active Substance: GLYBURIDE
  22. VERAPAMIL [Concomitant]
     Active Substance: VERAPAMIL HYDROCHLORIDE
  23. AMBIEN [Concomitant]
     Active Substance: ZOLPIDEM TARTRATE
  24. SIMVASTATIN. [Concomitant]
     Active Substance: SIMVASTATIN
  25. PLAVIX [Concomitant]
     Active Substance: CLOPIDOGREL BISULFATE
  26. ECOTRIN [Concomitant]
     Active Substance: ASPIRIN
  27. ANALGESIC [Concomitant]
     Active Substance: UNSPECIFIED INGREDIENT
  28. METFORMIN [Concomitant]
     Active Substance: METFORMIN HYDROCHLORIDE
     Indication: INSULIN-REQUIRING TYPE 2 DIABETES MELLITUS
     Route: 048
  29. ACETAMINOPHEN. [Concomitant]
     Active Substance: ACETAMINOPHEN
  30. TICLOPIDINE [Concomitant]
     Active Substance: TICLOPIDINE
  31. LABETALOL [Concomitant]
     Active Substance: LABETALOL\LABETALOL HYDROCHLORIDE
  32. INSPRA [Concomitant]
     Active Substance: EPLERENONE
  33. BIAXIN [Concomitant]
     Active Substance: CLARITHROMYCIN
  34. AVANDIA [Concomitant]
     Active Substance: ROSIGLITAZONE MALEATE
  35. VIOXX [Concomitant]
     Active Substance: ROFECOXIB
  36. NADOLOL. [Concomitant]
     Active Substance: NADOLOL
  37. HUMULIN NOS [Concomitant]
     Active Substance: INSULIN HUMAN
  38. ZYLET [Concomitant]
     Active Substance: LOTEPREDNOL ETABONATE\TOBRAMYCIN
  39. AVELOX [Concomitant]
     Active Substance: MOXIFLOXACIN HYDROCHLORIDE
  40. TAMSULOSIN [Concomitant]
     Active Substance: TAMSULOSIN
  41. LOTREL [Concomitant]
     Active Substance: AMLODIPINE BESYLATE\BENAZEPRIL HYDROCHLORIDE
  42. ONGLYZA [Concomitant]
     Active Substance: SAXAGLIPTIN HYDROCHLORIDE
  43. LEVEMIR [Concomitant]
     Active Substance: INSULIN DETEMIR
  44. BYETTA [Suspect]
     Active Substance: EXENATIDE
     Indication: INSULIN-REQUIRING TYPE 2 DIABETES MELLITUS
     Dosage: 250.0UG UNKNOWN
     Route: 058
     Dates: start: 20061221
  45. JANUMET [Suspect]
     Active Substance: METFORMIN HYDROCHLORIDE\SITAGLIPTIN PHOSPHATE
     Route: 065
     Dates: start: 200908, end: 201004
  46. VICTOZA [Suspect]
     Active Substance: LIRAGLUTIDE
     Route: 065
     Dates: start: 201005, end: 201007
  47. PROTONIX [Concomitant]
     Active Substance: PANTOPRAZOLE SODIUM
  48. CEPHALEXIN. [Concomitant]
     Active Substance: CEPHALEXIN
  49. DEXAMETHASONE. [Concomitant]
     Active Substance: DEXAMETHASONE
  50. METOPROLOL TARTRATE. [Concomitant]
     Active Substance: METOPROLOL TARTRATE
  51. KETOCONAZOLE. [Concomitant]
     Active Substance: KETOCONAZOLE
  52. TRIAMCINOLONE [Concomitant]
     Active Substance: TRIAMCINOLONE
  53. COUMADIN [Concomitant]
     Active Substance: WARFARIN SODIUM
  54. BYETTA [Suspect]
     Active Substance: EXENATIDE
     Indication: INSULIN-REQUIRING TYPE 2 DIABETES MELLITUS
     Dosage: 10.0UG UNKNOWN
     Route: 058
     Dates: start: 200804
  55. PROPOX [Concomitant]
  56. TOBRADEX [Concomitant]
     Active Substance: DEXAMETHASONE\TOBRAMYCIN
  57. FLUOCINONIDE. [Concomitant]
     Active Substance: FLUOCINONIDE
  58. METHYLPREDNISOLONE. [Concomitant]
     Active Substance: METHYLPREDNISOLONE
  59. XENICAL [Concomitant]
     Active Substance: ORLISTAT
  60. ADVAIR DISKUS [Concomitant]
     Active Substance: FLUTICASONE PROPIONATE\SALMETEROL XINAFOATE
  61. EFFIENT [Concomitant]
     Active Substance: PRASUGREL HYDROCHLORIDE
  62. LUNESTA [Concomitant]
     Active Substance: ESZOPICLONE
  63. VICTOZA [Suspect]
     Active Substance: LIRAGLUTIDE
     Dosage: 18 MG/3ML
     Route: 065
     Dates: start: 20100511, end: 201006
  64. PENICILLIN [Concomitant]
     Active Substance: PENICILLIN
  65. FLOVENT [Concomitant]
     Active Substance: FLUTICASONE PROPIONATE
  66. LIPITOR [Concomitant]
     Active Substance: ATORVASTATIN CALCIUM
  67. MECLIZINE [Concomitant]
     Active Substance: MECLIZINE HYDROCHLORIDE
  68. ACTOS [Concomitant]
     Active Substance: PIOGLITAZONE HYDROCHLORIDE
  69. OXYCODONE [Concomitant]
     Active Substance: OXYCODONE

REACTIONS (6)
  - Pancreatic carcinoma [Fatal]
  - Weight decreased [Recovered/Resolved]
  - Arteriosclerosis [Fatal]
  - Blood glucose increased [Not Recovered/Not Resolved]
  - Cardio-respiratory arrest [Fatal]
  - Coronary artery disease [Unknown]

NARRATIVE: CASE EVENT DATE: 2007
